FAERS Safety Report 13417887 (Version 2)
Quarter: 2018Q1

REPORT INFORMATION
  Report Type: Report from Study
  Country: DE (occurrence: DE)
  Receive Date: 20170407
  Receipt Date: 20180220
  Transmission Date: 20180508
  Serious: Yes (Other)
  Sender: FDA-Public Use
  Company Number: DE-BRISTOL-MYERS SQUIBB COMPANY-BMS-2017-029505

PATIENT
  Age: 83 Year
  Sex: Female
  Weight: 80 kg

DRUGS (1)
  1. APIXABAN [Suspect]
     Active Substance: APIXABAN
     Indication: EMBOLISM VENOUS
     Dosage: 10 MG, BID
     Route: 048
     Dates: start: 20160708

REACTIONS (3)
  - Off label use [Unknown]
  - Nail operation [Unknown]
  - Procedural haemorrhage [Unknown]

NARRATIVE: CASE EVENT DATE: 20170328
